FAERS Safety Report 12599461 (Version 8)
Quarter: 2016Q4

REPORT INFORMATION
  Report Type: Spontaneous
  Country: US (occurrence: US)
  Receive Date: 20160727
  Receipt Date: 20161208
  Transmission Date: 20170207
  Serious: Yes (Other)
  Sender: FDA-Public Use
  Company Number: US-ACTELION-A-NJ2016-139253

PATIENT
  Age: 52 Year
  Sex: Female

DRUGS (29)
  1. PREDNISONE. [Concomitant]
     Active Substance: PREDNISONE
  2. TYVASO [Concomitant]
     Active Substance: TREPROSTINIL
  3. FLONASE [Concomitant]
     Active Substance: FLUTICASONE PROPIONATE
  4. AMBRISENTAN [Suspect]
     Active Substance: AMBRISENTAN
     Indication: PULMONARY ARTERIAL HYPERTENSION
     Dosage: 10 MG, QD
     Route: 065
     Dates: start: 20130117
  5. WARFARIN [Concomitant]
     Active Substance: WARFARIN
  6. SULFADIAZINE. [Concomitant]
     Active Substance: SULFADIAZINE
  7. DIGOXIN. [Concomitant]
     Active Substance: DIGOXIN
  8. UPTRAVI [Suspect]
     Active Substance: SELEXIPAG
     Dosage: 1400 MCG, UNK
     Route: 048
     Dates: start: 20161006, end: 20161006
  9. DOXEPIN [Concomitant]
     Active Substance: DOXEPIN
  10. SPIRONOLACTONE. [Concomitant]
     Active Substance: SPIRONOLACTONE
  11. DIAZEPAM. [Concomitant]
     Active Substance: DIAZEPAM
  12. SILDENAFIL. [Concomitant]
     Active Substance: SILDENAFIL
  13. ORPHENADRINE [Concomitant]
     Active Substance: ORPHENADRINE
  14. OXYCODONE [Concomitant]
     Active Substance: OXYCODONE
  15. BACLOFEN. [Concomitant]
     Active Substance: BACLOFEN
  16. UPTRAVI [Suspect]
     Active Substance: SELEXIPAG
     Indication: PULMONARY ARTERIAL HYPERTENSION
     Dosage: 400 MCG, UNK
     Route: 048
     Dates: start: 20160616
  17. UPTRAVI [Suspect]
     Active Substance: SELEXIPAG
     Dosage: 200 MCG, BID
     Route: 048
  18. UPTRAVI [Suspect]
     Active Substance: SELEXIPAG
     Dosage: 200 MCG, UNK
     Route: 048
  19. MAXALT [Concomitant]
     Active Substance: RIZATRIPTAN BENZOATE
  20. REVATIO [Concomitant]
     Active Substance: SILDENAFIL CITRATE
  21. DICLOFENAC [Concomitant]
     Active Substance: DICLOFENAC
  22. XOPENEX [Concomitant]
     Active Substance: LEVALBUTEROL HYDROCHLORIDE
  23. ALDACTONE [Concomitant]
     Active Substance: SPIRONOLACTONE
  24. PANTOPRAZOLE [Concomitant]
     Active Substance: PANTOPRAZOLE SODIUM
  25. MAGNESIUM [Concomitant]
     Active Substance: MAGNESIUM
  26. UPTRAVI [Suspect]
     Active Substance: SELEXIPAG
     Dosage: 600 MCG, UNK
     Route: 048
     Dates: start: 20160616
  27. PROPANOLOL [Concomitant]
     Active Substance: PROPRANOLOL HYDROCHLORIDE
  28. SYMBICORT [Concomitant]
     Active Substance: BUDESONIDE\FORMOTEROL FUMARATE DIHYDRATE
  29. DEMADEX [Concomitant]
     Active Substance: TORSEMIDE

REACTIONS (22)
  - Consciousness fluctuating [Recovered/Resolved]
  - Incorrect dose administered [Recovered/Resolved]
  - Paraesthesia oral [Recovered/Resolved]
  - Neuropathy peripheral [Unknown]
  - Nausea [Not Recovered/Not Resolved]
  - Dyspnoea [Unknown]
  - Chest discomfort [Unknown]
  - Headache [Recovered/Resolved]
  - Pain in extremity [Unknown]
  - Myalgia [Recovered/Resolved]
  - Pain [Not Recovered/Not Resolved]
  - Palpitations [Unknown]
  - Vomiting [Unknown]
  - Diarrhoea [Not Recovered/Not Resolved]
  - Confusional state [Recovered/Resolved]
  - Restless legs syndrome [Unknown]
  - Migraine [Unknown]
  - Flushing [Unknown]
  - Dizziness postural [Recovered/Resolved]
  - Feeling abnormal [Unknown]
  - Pain in jaw [Unknown]
  - Anxiety [Unknown]

NARRATIVE: CASE EVENT DATE: 20160626
